FAERS Safety Report 6528909-3 (Version None)
Quarter: 2009Q4

REPORT INFORMATION
  Report Type: 
  Country: None (occurrence: None)
  Receive Date: 20091224
  Receipt Date: 20091029
  Transmission Date: 20100525
  Serious: Yes (Hospitalization)
  Sender: FDA-Public Use
  Company Number: AUR-APL-2009-01604

PATIENT
  Age: 82 Year
  Sex: Female

DRUGS (3)
  1. PAROXETINE [Suspect]
     Dosage: UNK, UNK, UNK
     Dates: start: 20080612
  2. DONEPEZIL HCL [Suspect]
     Dosage: UNK, UNK, UNK
     Dates: start: 20080612
  3. VALSARTAN [Suspect]
     Dosage: UNK - UNK - UNK
     Dates: start: 20080612

REACTIONS (2)
  - HYPOTENSION [None]
  - PRESYNCOPE [None]
